FAERS Safety Report 17584753 (Version 1)
Quarter: 2020Q1

REPORT INFORMATION
  Report Type: Spontaneous
  Country: JP (occurrence: JP)
  Receive Date: 20200326
  Receipt Date: 20200326
  Transmission Date: 20200409
  Serious: Yes (Other)
  Sender: FDA-Public Use
  Company Number: JP-PFIZER INC-2020125437

PATIENT

DRUGS (1)
  1. CORTRIL [Suspect]
     Active Substance: HYDROCORTISONE
     Dosage: 15 MG, DAILY (10MG IN THE MORNING AND 5MG AT NOON)
     Route: 048

REACTIONS (1)
  - Ileus [Unknown]
